FAERS Safety Report 7064702-3 (Version None)
Quarter: 2010Q4

REPORT INFORMATION
  Report Type: 
  Country: None (occurrence: None)
  Receive Date: 20101027
  Receipt Date: 20000128
  Transmission Date: 20110411
  Serious: Yes (Congenital Anomaly, Other)
  Sender: FDA-Public Use
  Company Number: DE-ROCHE-227783

PATIENT
  Sex: Male
  Weight: 2.8 kg

DRUGS (1)
  1. LARIAM [Suspect]
     Indication: MALARIA PROPHYLAXIS
     Route: 064
     Dates: start: 19960118, end: 19960314

REACTIONS (4)
  - CONGENITAL OESOPHAGEAL ANOMALY [None]
  - DEVELOPMENTAL DELAY [None]
  - HYPERTENSION [None]
  - MICROCEPHALY [None]
